FAERS Safety Report 19034566 (Version 5)
Quarter: 2021Q3

REPORT INFORMATION
  Report Type: Spontaneous
  Country: US (occurrence: US)
  Receive Date: 20210319
  Receipt Date: 20210901
  Transmission Date: 20211014
  Serious: Yes (Life-Threatening, Hospitalization, Other)
  Sender: FDA-Public Use
  Company Number: US-009507513-2103USA005256

PATIENT
  Age: 64 Year
  Sex: Female
  Weight: 68.03 kg

DRUGS (3)
  1. KEYTRUDA [Suspect]
     Active Substance: PEMBROLIZUMAB
     Indication: ENDOMETRIAL CANCER
     Dosage: 200 MILLIGRAM, Q3W(EVERY 3 WEEKS)
     Route: 042
     Dates: start: 20200515
  2. LENVATINIB MESYLATE [Suspect]
     Active Substance: LENVATINIB MESYLATE
     Indication: ENDOMETRIAL CANCER
     Dosage: UNK, ONCE DAILY (QD)
     Dates: start: 202005
  3. COVID?19 VACCINE NOS. [Suspect]
     Active Substance: COVID-19 VACCINE NOS
     Dosage: UNK
     Dates: start: 20210416

REACTIONS (17)
  - Asthenia [Unknown]
  - Seborrhoea [Not Recovered/Not Resolved]
  - Skin exfoliation [Not Recovered/Not Resolved]
  - Hepatic enzyme increased [Unknown]
  - Musculoskeletal pain [Not Recovered/Not Resolved]
  - Arthralgia [Not Recovered/Not Resolved]
  - Uterine neoplasm [Unknown]
  - Bone pain [Not Recovered/Not Resolved]
  - Ovarian neoplasm [Unknown]
  - Liver disorder [Unknown]
  - Pain in extremity [Not Recovered/Not Resolved]
  - Therapy non-responder [Unknown]
  - Dysstasia [Unknown]
  - Hypertension [Unknown]
  - Pyrexia [Unknown]
  - Inappropriate schedule of product administration [Unknown]
  - Memory impairment [Unknown]

NARRATIVE: CASE EVENT DATE: 202007
